FAERS Safety Report 4540880-2 (Version None)
Quarter: 2004Q4

REPORT INFORMATION
  Report Type: 
  Country: None (occurrence: None)
  Receive Date: 20041228
  Receipt Date: 20041217
  Transmission Date: 20050328
  Serious: Yes (Hospitalization)
  Sender: FDA-Public Use
  Company Number: 2004AP06273

PATIENT
  Age: 95 Year
  Sex: Male

DRUGS (4)
  1. NEXIUM [Suspect]
     Indication: GASTROOESOPHAGEAL REFLUX DISEASE
     Dosage: 40 MG DAILY PO
     Route: 048
     Dates: start: 20041201, end: 20041201
  2. BRICANYL [Concomitant]
  3. PULMICORT [Concomitant]
  4. SPIRIVA [Concomitant]

REACTIONS (1)
  - ANAPHYLACTIC REACTION [None]
